FAERS Safety Report 4293283-2 (Version None)
Quarter: 2004Q1

REPORT INFORMATION
  Report Type: 
  Country: None (occurrence: None)
  Receive Date: 20040210
  Receipt Date: 20040210
  Transmission Date: 20041129
  Serious: Yes (Hospitalization)
  Sender: FDA-Public Use
  Company Number: None

PATIENT
  Age: 66 Year
  Sex: Male
  Weight: 80 kg

DRUGS (9)
  1. PAROXETINE HCL [Suspect]
     Indication: DEPRESSION
     Dosage: 20MG QD PO
     Route: 048
     Dates: start: 19980301, end: 20020401
  2. PAROXETINE HCL [Suspect]
     Indication: DEPRESSION
     Dosage: 20MG QD PO
     Route: 048
     Dates: start: 20031201, end: 20031219
  3. SILDENAFIL CITRATE [Concomitant]
  4. ISONIAZID [Concomitant]
  5. PYRIDOXINE HCL [Concomitant]
  6. DEMECLOCYCLINE HCL [Concomitant]
  7. DOCUSATE NA [Concomitant]
  8. VENLAFAXINE HCL [Concomitant]
  9. RANITIDINE HCL [Concomitant]

REACTIONS (5)
  - DIARRHOEA [None]
  - GASTROENTERITIS [None]
  - HYPONATRAEMIA [None]
  - INAPPROPRIATE ANTIDIURETIC HORMONE SECRETION [None]
  - PULMONARY MASS [None]
